FAERS Safety Report 6225149-2 (Version None)
Quarter: 2009Q2

REPORT INFORMATION
  Report Type: 
  Country: None (occurrence: None)
  Receive Date: 20090612
  Receipt Date: 20090401
  Transmission Date: 20091009
  Serious: No
  Sender: FDA-Public Use
  Company Number: US-ABBOTT-09P-163-0567289-00

PATIENT
  Sex: Male
  Weight: 81.72 kg

DRUGS (6)
  1. HUMIRA [Suspect]
     Indication: SJOGREN'S SYNDROME
     Dosage: INITIAL DOSE
     Route: 058
     Dates: start: 20090310
  2. NEURONTIN [Concomitant]
     Indication: NEUROPATHY PERIPHERAL
  3. NORTRIPTYLINE HCL [Concomitant]
     Indication: INSOMNIA
  4. DURAGESIC-100 [Concomitant]
     Indication: PAIN
     Dosage: ROUTE: PATCH
  5. ALBUTEROL [Concomitant]
     Indication: DYSPNOEA
     Dosage: FORM: INHALER
  6. ALBUTEROL [Concomitant]
     Indication: LUNG DISORDER

REACTIONS (2)
  - FEELING COLD [None]
  - INJECTION SITE PAIN [None]
